FAERS Safety Report 8905645 (Version 1)
Quarter: 2012Q4

REPORT INFORMATION
  Report Type: 
  Country: BR (occurrence: BR)
  Receive Date: 20121113
  Receipt Date: 20121113
  Transmission Date: 20130627
  Serious: Yes (Other)
  Sender: FDA-Public Use
  Company Number: BR-ABBOTT-12P-020-1005721-00

PATIENT
  Sex: Male
  Weight: 72 kg

DRUGS (6)
  1. HUMIRA [Suspect]
     Indication: RHEUMATOID ARTHRITIS
     Dosage: No induction dose
     Route: 058
  2. HUMIRA [Suspect]
     Indication: SPONDYLITIS
  3. METHOTREXATE [Concomitant]
     Indication: RHEUMATOID ARTHRITIS
     Dosage: 6 tablets per week
     Route: 048
     Dates: start: 2002
  4. CARDIZEM [Concomitant]
     Indication: CARDIAC DISORDER
     Route: 048
     Dates: start: 200304
  5. SUSTRATE [Concomitant]
     Indication: CHEST PAIN
     Route: 048
     Dates: start: 200304
  6. ASPIRIN [Concomitant]
     Indication: ANTICOAGULANT THERAPY
     Route: 048
     Dates: start: 2003

REACTIONS (7)
  - Infarction [Recovered/Resolved]
  - Cough [Recovered/Resolved]
  - Rash macular [Not Recovered/Not Resolved]
  - Skin discolouration [Not Recovered/Not Resolved]
  - Pain [Not Recovered/Not Resolved]
  - Headache [Recovering/Resolving]
  - Pruritus [Not Recovered/Not Resolved]
